FAERS Safety Report 13984520 (Version 2)
Quarter: 2017Q4

REPORT INFORMATION
  Report Type: Spontaneous
  Country: US (occurrence: US)
  Receive Date: 20170918
  Receipt Date: 20171010
  Transmission Date: 20180321
  Serious: Yes (Other)
  Sender: FDA-Public Use
  Company Number: US-LUNDBECK-DKLU2037096

PATIENT
  Sex: Male

DRUGS (4)
  1. TOPIRAMATE. [Concomitant]
     Active Substance: TOPIRAMATE
     Indication: PRODUCT USED FOR UNKNOWN INDICATION
     Route: 065
  2. ONFI [Suspect]
     Active Substance: CLOBAZAM
     Indication: GENERALISED TONIC-CLONIC SEIZURE
     Route: 048
     Dates: start: 20170504
  3. ONFI [Suspect]
     Active Substance: CLOBAZAM
     Route: 048
  4. ONFI [Suspect]
     Active Substance: CLOBAZAM
     Route: 048

REACTIONS (1)
  - Seizure cluster [Unknown]
